FAERS Safety Report 11568065 (Version 1)
Quarter: 2015Q3

REPORT INFORMATION
  Report Type: Spontaneous
  Country: US (occurrence: US)
  Receive Date: 20150916
  Receipt Date: 20150916
  Transmission Date: 20151125
  Serious: Yes (Hospitalization)
  Sender: FDA-Public Use
  Company Number: US-ELI_LILLY_AND_COMPANY-US200908001711

PATIENT
  Age: 70 Year
  Sex: Female

DRUGS (3)
  1. CALCIUM                                 /N/A/ [Concomitant]
  2. FORTEO [Suspect]
     Active Substance: TERIPARATIDE
     Dates: start: 20090804
  3. VITAMIN D                          /00107901/ [Concomitant]
     Active Substance: ERGOCALCIFEROL

REACTIONS (1)
  - Chest pain [Not Recovered/Not Resolved]

NARRATIVE: CASE EVENT DATE: 20090807
